FAERS Safety Report 5037131-1 (Version None)
Quarter: 2006Q2

REPORT INFORMATION
  Report Type: 
  Country: None (occurrence: None)
  Receive Date: 20060601
  Receipt Date: 20060208
  Transmission Date: 20061013
  Serious: No
  Sender: FDA-Public Use
  Company Number: 2006PV008331

PATIENT
  Age: 66 Year
  Sex: Female
  Weight: 79.8331 kg

DRUGS (5)
  1. BYETTA [Suspect]
     Indication: DIABETES MELLITUS NON-INSULIN-DEPENDENT
     Dosage: SEE IMAGE
     Route: 058
     Dates: start: 20051101, end: 20051201
  2. BYETTA [Suspect]
     Indication: DIABETES MELLITUS NON-INSULIN-DEPENDENT
     Dosage: SEE IMAGE
     Route: 058
     Dates: start: 20051202
  3. HUMULIN 70/30 [Concomitant]
  4. ACTOS [Concomitant]
  5. GLUCOPHAGE [Concomitant]

REACTIONS (5)
  - BLOOD GLUCOSE DECREASED [None]
  - BREAST CANCER [None]
  - EPISTAXIS [None]
  - FEELING JITTERY [None]
  - HAEMORRHOIDAL HAEMORRHAGE [None]
